FAERS Safety Report 4376863-5 (Version None)
Quarter: 2004Q2

REPORT INFORMATION
  Report Type: 
  Country: None (occurrence: None)
  Receive Date: 20040608
  Receipt Date: 20030612
  Transmission Date: 20050107
  Serious: Yes (Other)
  Sender: FDA-Public Use
  Company Number: 200312001BCC

PATIENT
  Age: 73 Year
  Sex: Male
  Weight: 90.7194 kg

DRUGS (2)
  1. ALEVE (CAPLET) [Suspect]
     Indication: PAIN
     Dosage: 220 MG, ONCE, ORAL
     Route: 048
     Dates: start: 20030606
  2. ALEVE (CAPLET) [Suspect]
     Indication: PAIN
     Dosage: 220 MG, ONCE, ORAL
     Route: 048
     Dates: start: 20030611

REACTIONS (4)
  - BODY TEMPERATURE INCREASED [None]
  - DIZZINESS [None]
  - ERYTHEMA [None]
  - HYPERSENSITIVITY [None]
